FAERS Safety Report 11185736 (Version 1)
Quarter: 2015Q2

REPORT INFORMATION
  Report Type: Spontaneous
  Country: US (occurrence: US)
  Receive Date: 20150612
  Receipt Date: 20150612
  Transmission Date: 20150821
  Serious: Yes (Death, Other)
  Sender: FDA-Public Use
  Company Number: US-GLAXOSMITHKLINE-US2015081986

PATIENT
  Age: 64 Year
  Sex: Male

DRUGS (2)
  1. TYKERB [Suspect]
     Active Substance: LAPATINIB DITOSYLATE
     Indication: NEOPLASM MALIGNANT
  2. TYKERB [Suspect]
     Active Substance: LAPATINIB DITOSYLATE
     Indication: GASTRIC CANCER
     Dosage: 1000 MG, 1D
     Route: 048

REACTIONS (2)
  - Death [Fatal]
  - Hospice care [Recovered/Resolved]

NARRATIVE: CASE EVENT DATE: 20141006
